FAERS Safety Report 20781770 (Version 1)
Quarter: 2022Q2

REPORT INFORMATION
  Report Type: Spontaneous
  Country: FR (occurrence: FR)
  Receive Date: 20220504
  Receipt Date: 20220504
  Transmission Date: 20220721
  Serious: Yes (Death)
  Sender: FDA-Public Use
  Company Number: FR-SHIONOGI, INC-2022000395

PATIENT
  Sex: Female

DRUGS (1)
  1. FETROJA [Suspect]
     Active Substance: CEFIDEROCOL SULFATE TOSYLATE
     Indication: Stenotrophomonas infection
     Dosage: 8 G, 1 DAY
     Route: 065
     Dates: start: 20211023, end: 20211123

REACTIONS (1)
  - Myopathy [Fatal]
